FAERS Safety Report 7464391-X (Version None)
Quarter: 2011Q1

REPORT INFORMATION
  Report Type: 
  Country: None (occurrence: None)
  Receive Date: 20110302
  Receipt Date: 20101011
  Transmission Date: 20110831
  Serious: Yes (Disabling)
  Sender: FDA-Public Use
  Company Number: 163-21880-10091716

PATIENT
  Age: 63 Year
  Sex: Female
  Weight: 56.6996 kg

DRUGS (1)
  1. REVLIMID [Suspect]
     Indication: MULTIPLE MYELOMA
     Dosage: 25 MG, 1 IN 1 D, PO
     Route: 048
     Dates: start: 20091215, end: 20100105

REACTIONS (2)
  - SKIN ODOUR ABNORMAL [None]
  - DECREASED APPETITE [None]
